FAERS Safety Report 12986884 (Version 2)
Quarter: 2017Q2

REPORT INFORMATION
  Report Type: Spontaneous
  Country: US (occurrence: US)
  Receive Date: 20161130
  Receipt Date: 20170626
  Transmission Date: 20170830
  Serious: No
  Sender: FDA-Public Use
  Company Number: US-PFIZER INC-2016545805

PATIENT
  Age: 56 Year
  Sex: Female

DRUGS (2)
  1. PENICILLIN G POTASSIUM. [Suspect]
     Active Substance: PENICILLIN G POTASSIUM
     Dosage: UNK
  2. DEXTROSE. [Suspect]
     Active Substance: DEXTROSE
     Dosage: UNK

REACTIONS (1)
  - Drug hypersensitivity [Unknown]
